FAERS Safety Report 8621627-7 (Version None)
Quarter: 2012Q3

REPORT INFORMATION
  Report Type: 
  Country: None (occurrence: None)
  Receive Date: 20120820
  Receipt Date: 20120820
  Transmission Date: 20120928
  Serious: Yes (Other)
  Sender: FDA-Public Use
  Company Number: None

PATIENT
  Age: 76 Year
  Sex: Female

DRUGS (11)
  1. TOPROL-XL [Concomitant]
  2. TYLENOL [Concomitant]
  3. MULTI-VITAMIN [Concomitant]
  4. NAPROXEN [Suspect]
     Indication: PAIN
  5. MAXZIDE [Concomitant]
  6. SENNA [Concomitant]
  7. MIRALAX [Concomitant]
  8. DILAUDID [Concomitant]
  9. MEGACE [Concomitant]
  10. IRON SUPPLEMENT [Concomitant]
  11. SUTENT [Concomitant]

REACTIONS (1)
  - BLOOD URINE PRESENT [None]
